FAERS Safety Report 17725704 (Version 1)
Quarter: 2020Q2

REPORT INFORMATION
  Report Type: Spontaneous
  Country: US (occurrence: US)
  Receive Date: 20200429
  Receipt Date: 20200429
  Transmission Date: 20200714
  Serious: No
  Sender: FDA-Public Use
  Company Number: US-ELI_LILLY_AND_COMPANY-US202004011871

PATIENT
  Sex: Female

DRUGS (1)
  1. EMGALITY [Suspect]
     Active Substance: GALCANEZUMAB-GNLM
     Indication: PRODUCT USED FOR UNKNOWN INDICATION
     Dosage: 1 DOSAGE FORM, UNKNOWN
     Route: 065
     Dates: start: 202001

REACTIONS (5)
  - Injection site erythema [Not Recovered/Not Resolved]
  - Swelling [Unknown]
  - Injection site swelling [Not Recovered/Not Resolved]
  - Injection site reaction [Not Recovered/Not Resolved]
  - Erythema [Unknown]
